FAERS Safety Report 7609430-8 (Version None)
Quarter: 2011Q3

REPORT INFORMATION
  Report Type: 
  Country: None (occurrence: None)
  Receive Date: 20110714
  Receipt Date: 20110705
  Transmission Date: 20111222
  Serious: Yes (Death)
  Sender: FDA-Public Use
  Company Number: US-BAXTER-2011BH021337

PATIENT
  Age: 59 Year
  Sex: Female

DRUGS (13)
  1. LISINOPRIL [Concomitant]
     Indication: PRODUCT USED FOR UNKNOWN INDICATION
     Route: 048
  2. SPIRIVA [Concomitant]
     Indication: CHRONIC OBSTRUCTIVE PULMONARY DISEASE
     Route: 055
  3. COUMADIN [Concomitant]
     Indication: PRODUCT USED FOR UNKNOWN INDICATION
     Route: 048
  4. ARALAST NP [Suspect]
     Indication: ASTHMA
     Route: 042
     Dates: start: 20041201, end: 20110601
  5. ALPRAZOLAM [Concomitant]
     Indication: ANXIETY
     Route: 048
  6. OMEPRAZOLE [Concomitant]
     Indication: PRODUCT USED FOR UNKNOWN INDICATION
     Route: 048
  7. HYDROCHLOROTHIAZIDE [Concomitant]
     Indication: PRODUCT USED FOR UNKNOWN INDICATION
     Route: 048
  8. PREDNISONE [Concomitant]
     Indication: PRODUCT USED FOR UNKNOWN INDICATION
     Route: 048
  9. ARALAST NP [Suspect]
     Indication: ALPHA-1 ANTI-TRYPSIN DEFICIENCY
     Route: 042
     Dates: start: 20041201, end: 20110601
  10. CYMBALTA [Concomitant]
     Indication: DEPRESSION
     Route: 048
  11. TOPROL-XL [Concomitant]
     Indication: PRODUCT USED FOR UNKNOWN INDICATION
     Route: 048
  12. ASPIRIN [Concomitant]
     Indication: PRODUCT USED FOR UNKNOWN INDICATION
     Route: 048
  13. FLOVENT [Concomitant]
     Indication: ASTHMA
     Route: 048

REACTIONS (1)
  - DEATH [None]
